FAERS Safety Report 4928874-6 (Version None)
Quarter: 2006Q1

REPORT INFORMATION
  Report Type: 
  Country: None (occurrence: None)
  Receive Date: 20060224
  Receipt Date: 20060216
  Transmission Date: 20060701
  Serious: Yes (Hospitalization)
  Sender: FDA-Public Use
  Company Number: HQWYE906117FEB06

PATIENT
  Age: 54 Year
  Sex: Male

DRUGS (6)
  1. RAPAMUNE [Suspect]
     Indication: PROPHYLAXIS AGAINST TRANSPLANT REJECTION
     Dosage: 2 MG 1X PER 1 DAY
     Route: 048
     Dates: start: 20060201
  2. MYCOPHENOLATE MOFETIL [Concomitant]
  3. LEVOTHYROXINE SODIUM [Concomitant]
  4. FOLIC ACID [Concomitant]
  5. OMEPRAZOLE [Concomitant]
  6. NYSTATIN [Concomitant]

REACTIONS (3)
  - DRUG INEFFECTIVE [None]
  - LIVER TRANSPLANT REJECTION [None]
  - OVERDOSE [None]
